FAERS Safety Report 4736244-9 (Version None)
Quarter: 2005Q3

REPORT INFORMATION
  Report Type: 
  Country: None (occurrence: None)
  Receive Date: 20050804
  Receipt Date: 20050804
  Transmission Date: 20060218
  Serious: Yes (Hospitalization, Other)
  Sender: FDA-Public Use
  Company Number: None

PATIENT
  Sex: Female
  Weight: 54.5 kg

DRUGS (2)
  1. TEMOZOLOMIDE [Suspect]
     Indication: GLIOBLASTOMA MULTIFORME
     Dosage: SEE IMAGE
     Dates: start: 20050628, end: 20050702
  2. IRINOTECAN [Suspect]

REACTIONS (8)
  - BACK PAIN [None]
  - COUGH [None]
  - DEHYDRATION [None]
  - FALL [None]
  - PNEUMONIA [None]
  - POISONING [None]
  - STOMACH DISCOMFORT [None]
  - WEIGHT DECREASED [None]
